FAERS Safety Report 5401049-2 (Version None)
Quarter: 2007Q3

REPORT INFORMATION
  Report Type: 
  Country: None (occurrence: None)
  Receive Date: 20070726
  Receipt Date: 20070712
  Transmission Date: 20080115
  Serious: Yes (Other)
  Sender: FDA-Public Use
  Company Number: 2007EN000131

PATIENT
  Age: 68 Year
  Sex: Male
  Weight: 111.1313 kg

DRUGS (6)
  1. OPANA ER [Suspect]
     Indication: BACK PAIN
     Dosage: 20 MG;BID; 10 MG; BID
     Dates: start: 20070201, end: 20070301
  2. OPANA [Suspect]
     Indication: BREAKTHROUGH PAIN
     Dosage: 10 MG; TID; 5 MG; TID; 35 MG; QD
     Dates: start: 20070401, end: 20070101
  3. OPANA [Suspect]
     Indication: BREAKTHROUGH PAIN
     Dosage: 10 MG; TID; 5 MG; TID; 35 MG; QD
     Dates: start: 20061201, end: 20070201
  4. OPANA [Suspect]
     Indication: BREAKTHROUGH PAIN
     Dosage: 10 MG; TID; 5 MG; TID; 35 MG; QD
     Dates: start: 20070201, end: 20070401
  5. OPANA [Suspect]
     Indication: BREAKTHROUGH PAIN
     Dosage: 10 MG; TID; 5 MG; TID; 35 MG; QD
     Dates: start: 20070101, end: 20070501
  6. SLEEPING PILL  NOS [Concomitant]

REACTIONS (10)
  - ABNORMAL BEHAVIOUR [None]
  - AGITATION [None]
  - DRUG WITHDRAWAL SYNDROME [None]
  - FALL [None]
  - INSOMNIA [None]
  - INTENTIONAL DRUG MISUSE [None]
  - POOR QUALITY SLEEP [None]
  - POSTURE ABNORMAL [None]
  - RESTLESS LEGS SYNDROME [None]
  - SOMNOLENCE [None]
